FAERS Safety Report 4706091-2 (Version None)
Quarter: 2005Q2

REPORT INFORMATION
  Report Type: 
  Country: None (occurrence: None)
  Receive Date: 20050627
  Receipt Date: 20050125
  Transmission Date: 20051028
  Serious: Yes (Hospitalization, Other)
  Sender: FDA-Public Use
  Company Number: US-JNJFOC-20050105882

PATIENT
  Age: 46 Year
  Sex: Female

DRUGS (1)
  1. DURAGESIC-100 [Suspect]
     Indication: INTENTIONAL MISUSE
     Dosage: ORAL
     Route: 048

REACTIONS (1)
  - DRUG ABUSER [None]
